FAERS Safety Report 9413332 (Version 2)
Quarter: 2013Q3

REPORT INFORMATION
  Report Type: Spontaneous
  Country: US (occurrence: US)
  Receive Date: 20130722
  Receipt Date: 20130726
  Transmission Date: 20140515
  Serious: Yes (Death)
  Sender: FDA-Public Use
  Company Number: US-ASTRAZENECA-2013SE54817

PATIENT
  Sex: Female

DRUGS (1)
  1. NEXIUM [Suspect]
     Indication: CHEMOTHERAPY
     Route: 050
     Dates: end: 20120215

REACTIONS (3)
  - Cholangiocarcinoma [Fatal]
  - Pain [Unknown]
  - Off label use [Unknown]
